FAERS Safety Report 4509967-4 (Version None)
Quarter: 2004Q4

REPORT INFORMATION
  Report Type: 
  Country: None (occurrence: None)
  Receive Date: 20041119
  Receipt Date: 20041108
  Transmission Date: 20050328
  Serious: Yes (Other)
  Sender: FDA-Public Use
  Company Number: 2004243359JP

PATIENT
  Age: 71 Year
  Sex: Male

DRUGS (6)
  1. CABERGOLINE [Suspect]
     Indication: PARKINSON'S DISEASE
     Dosage: SEE IMAGE
     Route: 048
     Dates: start: 20040922, end: 20040927
  2. CABERGOLINE [Suspect]
     Indication: PARKINSON'S DISEASE
     Dosage: SEE IMAGE
     Route: 048
     Dates: start: 20040928, end: 20040928
  3. CABERGOLINE [Suspect]
     Indication: PARKINSON'S DISEASE
     Dosage: SEE IMAGE
     Route: 048
     Dates: start: 20040929, end: 20040929
  4. PERMAX [Suspect]
     Indication: PARKINSON'S DISEASE
     Dosage: ORAL
     Route: 048
     Dates: start: 20030901
  5. RISPERDAL [Suspect]
     Dosage: ORAL
     Route: 048
     Dates: start: 20040713, end: 20040915
  6. ZOTEPINE (ZOTEPINE) [Suspect]
     Dosage: ORAL
     Route: 048
     Dates: start: 20040601, end: 20040915

REACTIONS (1)
  - NEUROLEPTIC MALIGNANT SYNDROME [None]
